FAERS Safety Report 7020152-7 (Version None)
Quarter: 2010Q3

REPORT INFORMATION
  Report Type: 
  Country: None (occurrence: None)
  Receive Date: 20100929
  Receipt Date: 20100920
  Transmission Date: 20110219
  Serious: Yes (Hospitalization)
  Sender: FDA-Public Use
  Company Number: US-NOVOPROD-315091

PATIENT
  Sex: Female
  Weight: 87.982 kg

DRUGS (1)
  1. VICTOZA [Suspect]
     Indication: TYPE 2 DIABETES MELLITUS
     Dosage: 1.2 MG, QD
     Route: 058
     Dates: start: 20100101, end: 20100101

REACTIONS (3)
  - CHOLELITHIASIS [None]
  - PANCREATIC PSEUDOCYST [None]
  - PANCREATITIS [None]
